FAERS Safety Report 6114705-8 (Version None)
Quarter: 2009Q1

REPORT INFORMATION
  Report Type: 
  Country: None (occurrence: None)
  Receive Date: 20090313
  Receipt Date: 20090303
  Transmission Date: 20090719
  Serious: Yes (Other)
  Sender: FDA-Public Use
  Company Number: PHHY2009JP08068

PATIENT
  Age: 61 Year
  Sex: Male

DRUGS (1)
  1. VOLTAREN [Suspect]
     Indication: PYREXIA
     Dosage: 50 MG/D
     Route: 054

REACTIONS (2)
  - ANURIA [None]
  - URINARY RETENTION [None]
